FAERS Safety Report 5903538-0 (Version None)
Quarter: 2008Q3

REPORT INFORMATION
  Report Type: 
  Country: None (occurrence: None)
  Receive Date: 20080919
  Receipt Date: 20080822
  Transmission Date: 20090109
  Serious: No
  Sender: FDA-Public Use
  Company Number: US-WYE-H05684708

PATIENT
  Age: 31 Year
  Sex: Female

DRUGS (5)
  1. PRISTIQ [Suspect]
     Indication: ANXIETY
     Dosage: 50 MG 1X PER 1 DAY ORAL
     Route: 048
     Dates: start: 20080818, end: 20080821
  2. PRISTIQ [Suspect]
     Indication: DEPRESSION
     Dosage: 50 MG 1X PER 1 DAY ORAL
     Route: 048
     Dates: start: 20080818, end: 20080821
  3. COENZYME Q10 (COENZYME Q10) [Concomitant]
  4. ETHINYL ESTRADIOL W/NORGESTREL (ETHINYLESTRADIOL/NORGESTREL) [Concomitant]
  5. IMITREX [Concomitant]

REACTIONS (3)
  - FEELING ABNORMAL [None]
  - FEELING JITTERY [None]
  - INSOMNIA [None]
